FAERS Safety Report 4954028-3 (Version None)
Quarter: 2006Q1

REPORT INFORMATION
  Report Type: 
  Country: None (occurrence: None)
  Receive Date: 20060321
  Receipt Date: 20060308
  Transmission Date: 20060701
  Serious: Yes (Other)
  Sender: FDA-Public Use
  Company Number: USA-2006-0023732

PATIENT
  Age: 36 Year
  Sex: Female

DRUGS (3)
  1. OXYCONTIN [Suspect]
     Indication: HEADACHE
     Dosage: 80 MG, QID,
     Dates: start: 19990101, end: 20040101
  2. SENOKOT [Concomitant]
  3. XANAX [Concomitant]

REACTIONS (18)
  - AMENORRHOEA [None]
  - ANORECTAL DISORDER [None]
  - ANOREXIA [None]
  - AXILLARY MASS [None]
  - BREAST MASS [None]
  - CONSTIPATION [None]
  - DRUG DEPENDENCE [None]
  - DRUG EXPOSURE BEFORE PREGNANCY [None]
  - DRUG INEFFECTIVE [None]
  - GENERAL PHYSICAL HEALTH DETERIORATION [None]
  - IMPAIRED HEALING [None]
  - LYMPHADENOPATHY [None]
  - NEOPLASM MALIGNANT [None]
  - POISONING [None]
  - PRECANCEROUS CELLS PRESENT [None]
  - PREGNANCY [None]
  - PREMATURE LABOUR [None]
  - UTERINE DISORDER [None]
